FAERS Safety Report 21017107 (Version 3)
Quarter: 2022Q3

REPORT INFORMATION
  Report Type: Spontaneous
  Country: AR (occurrence: AR)
  Receive Date: 20220628
  Receipt Date: 20220803
  Transmission Date: 20221027
  Serious: Yes (Other)
  Sender: FDA-Public Use
  Company Number: AR-PFIZER INC-PV202200007655

PATIENT
  Age: 39 Year
  Sex: Male

DRUGS (1)
  1. IXIFI [Suspect]
     Active Substance: INFLIXIMAB-QBTX
     Indication: Colitis ulcerative
     Dosage: 5 MG EVERY 6 WEEKS
     Dates: start: 20210701

REACTIONS (5)
  - Haemorrhage [Unknown]
  - Anaemia [Unknown]
  - Off label use [Unknown]
  - Drug effect less than expected [Unknown]
  - Drug ineffective [Unknown]
